FAERS Safety Report 6459891-5 (Version None)
Quarter: 2009Q4

REPORT INFORMATION
  Report Type: 
  Country: None (occurrence: None)
  Receive Date: 20091129
  Receipt Date: 20091116
  Transmission Date: 20100525
  Serious: Yes (Other)
  Sender: FDA-Public Use
  Company Number: PHHY2009ES50353

PATIENT
  Age: 73 Year
  Sex: Female

DRUGS (1)
  1. ZOLEDRONIC ACID [Suspect]
     Indication: BREAST CANCER METASTATIC

REACTIONS (4)
  - DYSAESTHESIA [None]
  - HYPOAESTHESIA [None]
  - OSTEOLYSIS [None]
  - OSTEONECROSIS [None]
